FAERS Safety Report 6567158-X (Version None)
Quarter: 2010Q1

REPORT INFORMATION
  Report Type: 
  Country: None (occurrence: None)
  Receive Date: 20100202
  Receipt Date: 20100128
  Transmission Date: 20100710
  Serious: Yes (Hospitalization)
  Sender: FDA-Public Use
  Company Number: IL-SANOFI-AVENTIS-2010SA005223

PATIENT
  Sex: Female

DRUGS (2)
  1. APIDRA [Suspect]
     Route: 058
  2. INSULIN PUMP [Suspect]

REACTIONS (1)
  - KETOACIDOSIS [None]
